FAERS Safety Report 25017766 (Version 2)
Quarter: 2025Q1

REPORT INFORMATION
  Report Type: Spontaneous
  Country: DK (occurrence: DK)
  Receive Date: 20250227
  Receipt Date: 20250312
  Transmission Date: 20250408
  Serious: Yes (Hospitalization)
  Sender: TEVA
  Company Number: DK-TEVA-VS-3301760

PATIENT
  Sex: Male

DRUGS (42)
  1. LAMOTRIGINE [Suspect]
     Active Substance: LAMOTRIGINE
     Indication: Epilepsy
     Route: 048
  2. LAMOTRIGINE [Suspect]
     Active Substance: LAMOTRIGINE
     Indication: Epilepsy
     Route: 048
  3. NAPROXEN [Concomitant]
     Active Substance: NAPROXEN
     Indication: Product used for unknown indication
     Route: 048
  4. FLUCONAZOLE [Concomitant]
     Active Substance: FLUCONAZOLE
     Indication: Fungal peritonitis
     Route: 042
  5. DIAZEPAM [Concomitant]
     Active Substance: DIAZEPAM
     Indication: Epilepsy
     Route: 054
  6. MEROPENEM [Interacting]
     Active Substance: MEROPENEM
     Indication: Infection
     Route: 042
  7. LEVETIRACETAM [Concomitant]
     Active Substance: LEVETIRACETAM
     Indication: Epilepsy
     Route: 042
  8. LEVETIRACETAM [Concomitant]
     Active Substance: LEVETIRACETAM
     Indication: Epilepsy
     Route: 048
  9. LORAZEPAM [Concomitant]
     Active Substance: LORAZEPAM
     Indication: Epilepsy
     Route: 048
  10. MIDAZOLAM [Concomitant]
     Active Substance: MIDAZOLAM
     Indication: Epilepsy
     Route: 042
  11. MIDAZOLAM [Concomitant]
     Active Substance: MIDAZOLAM
     Indication: Epilepsy
     Route: 048
  12. MIDAZOLAM [Concomitant]
     Active Substance: MIDAZOLAM
     Indication: Epilepsy
     Route: 002
  13. LEVOMEPROMAZINE [Concomitant]
     Active Substance: LEVOMEPROMAZINE
     Indication: Product used for unknown indication
     Route: 048
  14. TOPIRAMATE [Interacting]
     Active Substance: TOPIRAMATE
     Indication: Epilepsy
     Route: 048
  15. MORPHINE [Concomitant]
     Active Substance: MORPHINE
     Indication: Product used for unknown indication
     Route: 042
  16. MORPHINE [Concomitant]
     Active Substance: MORPHINE
     Indication: Product used for unknown indication
     Route: 042
  17. MORPHINE [Concomitant]
     Active Substance: MORPHINE
     Indication: Product used for unknown indication
     Route: 048
  18. PHENOBARBITAL [Interacting]
     Active Substance: PHENOBARBITAL
     Indication: Epilepsy
     Route: 042
  19. PHENOBARBITAL [Interacting]
     Active Substance: PHENOBARBITAL
     Indication: Epilepsy
     Route: 048
  20. METRONIDAZOLE [Concomitant]
     Active Substance: METRONIDAZOLE
     Indication: Infection
     Route: 042
  21. FENTANYL [Concomitant]
     Active Substance: FENTANYL
     Indication: Product used for unknown indication
     Route: 042
  22. PIPERACILLIN AND TAZOBACTAM [Concomitant]
     Active Substance: PIPERACILLIN SODIUM\TAZOBACTAM SODIUM
     Indication: Infection
     Route: 042
  23. ACETAMINOPHEN [Concomitant]
     Active Substance: ACETAMINOPHEN
     Indication: Product used for unknown indication
     Route: 048
  24. ACETAMINOPHEN [Concomitant]
     Active Substance: ACETAMINOPHEN
     Indication: Product used for unknown indication
     Route: 042
  25. ANIDULAFUNGIN [Concomitant]
     Active Substance: ANIDULAFUNGIN
     Indication: Fungal peritonitis
     Route: 042
  26. CLONIDINE [Concomitant]
     Active Substance: CLONIDINE
     Indication: Product used for unknown indication
     Route: 042
  27. CLOBAZAM [Concomitant]
     Active Substance: CLOBAZAM
     Indication: Epilepsy
     Route: 048
  28. KETOROLAC [Concomitant]
     Active Substance: KETOROLAC TROMETHAMINE
     Indication: Product used for unknown indication
     Route: 042
  29. DEXAMETHASONE [Concomitant]
     Active Substance: DEXAMETHASONE
     Indication: Product used for unknown indication
     Route: 042
  30. FOSPHENYTOIN [Interacting]
     Active Substance: FOSPHENYTOIN
     Indication: Epilepsy
     Route: 042
  31. ESOMEPRAZOLE [Concomitant]
     Active Substance: ESOMEPRAZOLE
     Indication: Product used for unknown indication
     Route: 048
  32. HALOPERIDOL [Concomitant]
     Active Substance: HALOPERIDOL
     Indication: Delirium
     Route: 042
  33. HALOPERIDOL [Concomitant]
     Active Substance: HALOPERIDOL
     Indication: Delirium
     Route: 048
  34. PROPOFOL [Concomitant]
     Active Substance: PROPOFOL
     Indication: Product used for unknown indication
     Route: 042
  35. ONDANSETRON [Concomitant]
     Active Substance: ONDANSETRON
     Indication: Product used for unknown indication
     Route: 048
  36. ONDANSETRON [Concomitant]
     Active Substance: ONDANSETRON
     Indication: Product used for unknown indication
     Route: 042
  37. MELATONIN [Concomitant]
     Active Substance: MELATONIN
     Indication: Product used for unknown indication
     Route: 048
  38. VALPROIC ACID [Interacting]
     Active Substance: VALPROIC ACID
     Indication: Epilepsy
     Route: 048
  39. VALPROIC ACID [Interacting]
     Active Substance: VALPROIC ACID
     Indication: Epilepsy
     Route: 048
  40. VALPROIC ACID [Interacting]
     Active Substance: VALPROIC ACID
     Indication: Epilepsy
     Dosage: FROM DAY 0 7 OF HOSPITALISATION
     Route: 048
  41. VALPROIC ACID [Interacting]
     Active Substance: VALPROIC ACID
     Indication: Epilepsy
     Route: 042
  42. VALPROIC ACID [Interacting]
     Active Substance: VALPROIC ACID
     Indication: Epilepsy
     Route: 042

REACTIONS (2)
  - Drug level decreased [Unknown]
  - Drug interaction [Unknown]
